FAERS Safety Report 16007222 (Version 1)
Quarter: 2019Q1

REPORT INFORMATION
  Report Type: Spontaneous
  Country: FR (occurrence: FR)
  Receive Date: 20190226
  Receipt Date: 20190226
  Transmission Date: 20190418
  Serious: Yes (Other)
  Sender: FDA-Public Use
  Company Number: PHHY2019FR039833

PATIENT
  Age: 1 Year
  Sex: Female
  Weight: 9.5 kg

DRUGS (2)
  1. VANCOMYCIN [Suspect]
     Active Substance: VANCOMYCIN
     Indication: SEPSIS
     Dosage: 36 MG/KG, QD
     Route: 042
     Dates: start: 20190122, end: 20190124
  2. HEPARIN [Suspect]
     Active Substance: HEPARIN SODIUM
     Indication: THROMBOSIS PROPHYLAXIS
     Dosage: 20 IU/KG, QD
     Route: 042
     Dates: start: 20190122

REACTIONS (2)
  - Anti factor Xa activity decreased [Recovered/Resolved]
  - Drug chemical incompatibility [Recovered/Resolved]

NARRATIVE: CASE EVENT DATE: 20190122
